FAERS Safety Report 12363404 (Version 1)
Quarter: 2016Q2

REPORT INFORMATION
  Report Type: Spontaneous
  Country: US (occurrence: US)
  Receive Date: 20160512
  Receipt Date: 20160512
  Transmission Date: 20160815
  Serious: No
  Sender: FDA-Public Use
  Company Number: US-UCBSA-2015007753

PATIENT
  Sex: Female

DRUGS (1)
  1. CIMZIA [Suspect]
     Active Substance: CERTOLIZUMAB PEGOL
     Indication: RHEUMATOID ARTHRITIS
     Dosage: 200 MG, UNK, DOSE: INJECT ONE 200 MG SYRINGE UNDER THE SKIN EVER
     Route: 058
     Dates: start: 20140528, end: 20150225

REACTIONS (2)
  - Diarrhoea [Unknown]
  - Somnolence [Unknown]
